FAERS Safety Report 5649998-4 (Version None)
Quarter: 2008Q1

REPORT INFORMATION
  Report Type: 
  Country: None (occurrence: None)
  Receive Date: 20080131
  Receipt Date: 20071127
  Transmission Date: 20080703
  Serious: No
  Sender: FDA-Public Use
  Company Number: 2006PV017103

PATIENT
  Age: 55 Year
  Sex: Female
  Weight: 90.7 kg

DRUGS (13)
  1. EXENATIDE(EXENATIDE) PEN,DISPOSABLE [Suspect]
     Indication: TYPE 2 DIABETES MELLITUS
     Dosage: 5 UG, DAILY (1/D), SUBCUTANEOUS ; 5 UG, 2/D, SUBCUTANEOUS
     Route: 058
     Dates: start: 20060306, end: 20060313
  2. EXENATIDE(EXENATIDE) PEN,DISPOSABLE [Suspect]
     Indication: TYPE 2 DIABETES MELLITUS
     Dosage: 5 UG, DAILY (1/D), SUBCUTANEOUS ; 5 UG, 2/D, SUBCUTANEOUS
     Route: 058
     Dates: start: 20060706, end: 20060706
  3. GLUCOVANCE 2.5/500 TABLET [Concomitant]
  4. ATENOLOL [Concomitant]
  5. LASIX [Concomitant]
  6. COZAAR [Concomitant]
  7. ASPIRIN [Concomitant]
  8. PREMARIN [Concomitant]
  9. SPIRONOLACTONE [Concomitant]
  10. ZETIA [Concomitant]
  11. CENTRUM TABLET [Concomitant]
  12. GLUCOVANCE [Concomitant]
  13. CORTISONE ACETATE [Concomitant]

REACTIONS (3)
  - BLOOD GLUCOSE INCREASED [None]
  - FACE OEDEMA [None]
  - LOCALISED OEDEMA [None]
